FAERS Safety Report 7648210-4 (Version None)
Quarter: 2011Q3

REPORT INFORMATION
  Report Type: 
  Country: None (occurrence: None)
  Receive Date: 20110801
  Receipt Date: 20110718
  Transmission Date: 20111222
  Serious: No
  Sender: FDA-Public Use
  Company Number: US-PFIZER INC-2011140019

PATIENT
  Sex: Female
  Weight: 63.492 kg

DRUGS (8)
  1. MYCOBUTIN [Suspect]
     Indication: ATYPICAL MYCOBACTERIAL INFECTION
     Dosage: TWO CAPSULES, 3X/WEEK
     Route: 048
     Dates: start: 20101201
  2. PRILOSEC [Concomitant]
     Dosage: UNK
  3. PREDNISONE [Concomitant]
  4. SPIRIVA [Concomitant]
     Dosage: UNK
  5. PREDNISOLONE [Concomitant]
     Indication: CHRONIC OBSTRUCTIVE PULMONARY DISEASE
     Dosage: 10 MG, DAILY
  6. AZITHROMYCIN [Concomitant]
     Dosage: UNK
  7. ETHAMBUTOL [Concomitant]
     Dosage: UNK
  8. SYMBICORT [Concomitant]
     Dosage: UNK

REACTIONS (2)
  - POOR QUALITY DRUG ADMINISTERED [None]
  - CHROMATURIA [None]
